FAERS Safety Report 6679902-1 (Version None)
Quarter: 2010Q2

REPORT INFORMATION
  Report Type: 
  Country: None (occurrence: None)
  Receive Date: 20100413
  Receipt Date: 20100408
  Transmission Date: 20101027
  Serious: Yes (Life-Threatening)
  Sender: FDA-Public Use
  Company Number: GB-SANOFI-AVENTIS-2010SA020493

PATIENT
  Sex: Female

DRUGS (3)
  1. OXALIPLATIN [Suspect]
     Route: 041
     Dates: start: 20091101, end: 20091101
  2. FLUOROURACIL [Suspect]
     Route: 040
     Dates: start: 20091101, end: 20091101
  3. FLUOROURACIL [Suspect]
     Route: 041
     Dates: start: 20091101, end: 20091101

REACTIONS (1)
  - EJECTION FRACTION DECREASED [None]
